FAERS Safety Report 21155288 (Version 1)
Quarter: 2022Q3

REPORT INFORMATION
  Report Type: Spontaneous
  Country: ES (occurrence: ES)
  Receive Date: 20220801
  Receipt Date: 20220801
  Transmission Date: 20221026
  Serious: Yes (Other)
  Sender: FDA-Public Use
  Company Number: None

PATIENT
  Age: 59 Year
  Sex: Male
  Weight: 118 kg

DRUGS (1)
  1. SIMVASTATIN [Suspect]
     Active Substance: SIMVASTATIN
     Indication: Blood cholesterol increased
     Dosage: 20 MILLIGRAM DAILY; 1 EVERY 24 HOURS ,SIMVASTATINATEVARIMAFAR
     Dates: start: 20220601, end: 20220703

REACTIONS (4)
  - Sleep disorder [Unknown]
  - Dyspnoea [Unknown]
  - Nightmare [Unknown]
  - Cough [Unknown]

NARRATIVE: CASE EVENT DATE: 20220624
